FAERS Safety Report 23390858 (Version 5)
Quarter: 2025Q2

REPORT INFORMATION
  Report Type: Spontaneous
  Country: DE (occurrence: DE)
  Receive Date: 20240111
  Receipt Date: 20250408
  Transmission Date: 20250717
  Serious: Yes (Other)
  Sender: SANOFI AVENTIS
  Company Number: DE-SANOFI-01898167

PATIENT
  Age: 29 Year
  Sex: Male

DRUGS (3)
  1. DUPIXENT [Suspect]
     Active Substance: DUPILUMAB
     Indication: Eosinophilic oesophagitis
     Dosage: 300 MG, QW
     Route: 058
     Dates: start: 202307, end: 202312
  2. BUDESONIDE [Concomitant]
     Active Substance: BUDESONIDE
     Dosage: TID
  3. ESOMEPRAZOLE [Concomitant]
     Active Substance: ESOMEPRAZOLE
     Dosage: 20 MG, QD (30 MIN BEFORE BREAKFAST)

REACTIONS (7)
  - Muscle rupture [Not Recovered/Not Resolved]
  - Condition aggravated [Not Recovered/Not Resolved]
  - Muscle disorder [Unknown]
  - Muscle strain [Unknown]
  - Impaired work ability [Unknown]
  - Impaired healing [Unknown]
  - Muscle injury [Unknown]

NARRATIVE: CASE EVENT DATE: 20230801
